FAERS Safety Report 16363256 (Version 1)
Quarter: 2019Q3

REPORT INFORMATION
  Report Type: Spontaneous
  Country: US (occurrence: US)
  Receive Date: 20190527
  Receipt Date: 20190527
  Transmission Date: 20191004
  Serious: Yes (Other)
  Sender: FDA-Public Use
  Company Number: None

PATIENT
  Age: 21 Year
  Weight: 99 kg

DRUGS (6)
  1. BENZONATATE. [Suspect]
     Active Substance: BENZONATATE
     Indication: SINUSITIS
     Dosage: ?          QUANTITY:1 CAPSULE(S);?
     Route: 048
     Dates: start: 20190527, end: 20190527
  2. DEPO-PROVERA [Concomitant]
     Active Substance: MEDROXYPROGESTERONE ACETATE
  3. ALBUTERAL [Concomitant]
     Active Substance: ALBUTEROL
  4. SUMATRIPTAN. [Concomitant]
     Active Substance: SUMATRIPTAN
  5. AMOXACILLAN [Concomitant]
  6. LEXAPRO [Concomitant]
     Active Substance: ESCITALOPRAM OXALATE

REACTIONS (5)
  - Pruritus [None]
  - Dizziness [None]
  - Nausea [None]
  - Chest discomfort [None]
  - Hypoaesthesia oral [None]

NARRATIVE: CASE EVENT DATE: 20190527
